FAERS Safety Report 9255311 (Version 3)
Quarter: 2013Q2

REPORT INFORMATION
  Report Type: Spontaneous
  Country: US (occurrence: US)
  Receive Date: 20130425
  Receipt Date: 20130529
  Transmission Date: 20140414
  Serious: Yes (Other)
  Sender: FDA-Public Use
  Company Number: US-AMGEN-USASP2013027897

PATIENT
  Age: 74 Year
  Sex: Male
  Weight: 110 kg

DRUGS (7)
  1. XGEVA [Suspect]
     Indication: PROSTATE CANCER METASTATIC
     Dosage: 120 MG, QMO
     Route: 058
     Dates: start: 20120606, end: 20121106
  2. ARANESP [Concomitant]
     Indication: ANAEMIA
     Dosage: 300 MUG, QMO
     Route: 058
     Dates: start: 20130124
  3. TAXOTERE [Concomitant]
     Indication: PROSTATE CANCER
     Dosage: 75 MG/M2, QMO
     Route: 042
     Dates: start: 20120513
  4. LUPRON [Concomitant]
     Indication: PROSTATE CANCER
     Dosage: 300 MG, Q4MO
     Route: 058
     Dates: start: 20120705
  5. LUPRON [Concomitant]
     Indication: METASTASES TO BONE
  6. ZYTIGA [Concomitant]
     Indication: PROSTATE CANCER
     Dosage: 250 MG, QD
     Route: 048
     Dates: start: 20130422
  7. DEXAMETHASONE [Concomitant]
     Dosage: 20 MG, Q3WK
     Dates: start: 20120315

REACTIONS (2)
  - Osteonecrosis of jaw [Not Recovered/Not Resolved]
  - Hypocalcaemia [Recovered/Resolved]
